FAERS Safety Report 7268511-1 (Version None)
Quarter: 2010Q4

REPORT INFORMATION
  Report Type: 
  Country: None (occurrence: None)
  Receive Date: 20101206
  Receipt Date: 20101011
  Transmission Date: 20110411
  Serious: No
  Sender: FDA-Public Use
  Company Number: 2010SP054393

PATIENT
  Age: 13 Year
  Sex: Female

DRUGS (16)
  1. SAPHRIS [Suspect]
     Indication: SCHIZOPHRENIA
     Dosage: 5 MG;BID;SL
     Route: 060
     Dates: start: 20101009
  2. COGENTIN [Concomitant]
  3. TYLENOL [Concomitant]
  4. MAALOX [Concomitant]
  5. TUMS [Concomitant]
  6. CLONIDINE [Concomitant]
  7. BENADRYL [Concomitant]
  8. PEPCID [Concomitant]
  9. FISH OIL [Concomitant]
  10. FOLIC ACIC [Concomitant]
  11. IBUPROFEN [Concomitant]
  12. LAMICTAL [Concomitant]
  13. ATIVAN [Concomitant]
  14. MELATONIN [Concomitant]
  15. SENA (SENNA) [Concomitant]
  16. GEODON [Concomitant]

REACTIONS (1)
  - GLOSSODYNIA [None]
